FAERS Safety Report 15311294 (Version 1)
Quarter: 2018Q3

REPORT INFORMATION
  Report Type: Spontaneous
  Country: IT (occurrence: IT)
  Receive Date: 20180823
  Receipt Date: 20180823
  Transmission Date: 20181010
  Serious: Yes (Other)
  Sender: FDA-Public Use
  Company Number: IT-PFIZER INC-2018339173

PATIENT
  Age: 73 Year
  Sex: Female

DRUGS (2)
  1. CARBOPLATINO PFIZER ITALIA [Suspect]
     Active Substance: CARBOPLATIN
     Indication: NEOPLASM OF THYMUS
     Dosage: UNK
     Route: 042
     Dates: start: 20180103, end: 20180103
  2. ETOPOSIDE ACCORD [Suspect]
     Active Substance: ETOPOSIDE
     Indication: NEOPLASM OF THYMUS
     Dosage: UNK
     Route: 042
     Dates: start: 20180103, end: 20180103

REACTIONS (3)
  - Hypoxia [Recovered/Resolved]
  - Throat tightness [Recovered/Resolved]
  - Dyspnoea [Recovered/Resolved]

NARRATIVE: CASE EVENT DATE: 20180103
